FAERS Safety Report 24460195 (Version 1)
Quarter: 2024Q4

REPORT INFORMATION
  Report Type: Report from Study
  Country: US (occurrence: US)
  Receive Date: 20241018
  Receipt Date: 20241018
  Transmission Date: 20250115
  Serious: No
  Sender: ROCHE
  Company Number: US-ROCHE-3535640

PATIENT
  Age: 34 Year
  Sex: Male

DRUGS (12)
  1. RITUXAN [Suspect]
     Active Substance: RITUXIMAB
     Indication: Pemphigus
     Dosage: VIAL, ONE DOSE, 10 MG/ML
     Route: 042
  2. RITUXAN [Suspect]
     Active Substance: RITUXIMAB
     Dosage: VIAL
     Route: 042
     Dates: start: 20221112
  3. ACETAMINOPHEN [Concomitant]
     Active Substance: ACETAMINOPHEN
  4. CALCIUM CARBONATE\VITAMIN D [Concomitant]
     Active Substance: CALCIUM CARBONATE\VITAMIN D
     Dosage: ELEMENTAL AND VITA D UNIT TABLET
  5. BENADRYL [Concomitant]
     Active Substance: DIPHENHYDRAMINE HYDROCHLORIDE
  6. CALCIUM CARBONATE [Concomitant]
     Active Substance: CALCIUM CARBONATE
  7. LIDOCAINE [Concomitant]
     Active Substance: LIDOCAINE
  8. PANTOPRAZOLE [Concomitant]
     Active Substance: PANTOPRAZOLE
     Dosage: 40 MG DR TABLET
  9. PREDNISONE [Concomitant]
     Active Substance: PREDNISONE
  10. PREDNISONE [Concomitant]
     Active Substance: PREDNISONE
  11. SULFAMETHOXAZOLE\TRIMETHOPRIM [Concomitant]
     Active Substance: SULFAMETHOXAZOLE\TRIMETHOPRIM
     Dosage: 300-150 MG TABLET
  12. TACROLIMUS [Concomitant]
     Active Substance: TACROLIMUS

REACTIONS (2)
  - Off label use [Unknown]
  - No adverse event [Unknown]
